FAERS Safety Report 22204727 (Version 1)
Quarter: 2023Q2

REPORT INFORMATION
  Report Type: Spontaneous
  Country: US (occurrence: US)
  Receive Date: 20230413
  Receipt Date: 20230413
  Transmission Date: 20230722
  Serious: Yes (Hospitalization, Other)
  Sender: FDA-Public Use
  Company Number: US-ALKEM LABORATORIES LIMITED-US-ALKEM-2023-03862

PATIENT
  Age: 42 Year
  Sex: Male

DRUGS (18)
  1. MORPHINE SULFATE [Suspect]
     Active Substance: MORPHINE SULFATE
     Indication: Pain
     Dosage: 0.2 MILLIGRAM/HOUR, (VIA A RECENTLY PLACED PUMP)
     Route: 037
  2. MORPHINE SULFATE [Suspect]
     Active Substance: MORPHINE SULFATE
     Dosage: UNK, (TITRATED)
     Route: 037
  3. MORPHINE SULFATE [Suspect]
     Active Substance: MORPHINE SULFATE
     Dosage: UNK,
     Route: 048
  4. METHADONE HYDROCHLORIDE [Suspect]
     Active Substance: METHADONE HYDROCHLORIDE
     Indication: Pain
     Dosage: 80 MILLIGRAM, TID, (Q 8 HOURS)
     Route: 048
  5. METHADONE HYDROCHLORIDE [Suspect]
     Active Substance: METHADONE HYDROCHLORIDE
     Dosage: 100 MILLIGRAM, TID (EVERY 8 HOUR)
     Route: 048
  6. HYDROMORPHONE [Suspect]
     Active Substance: HYDROMORPHONE
     Indication: Pain
     Dosage: 40 MILLIGRAM/HOUR (UP TO 60 MG/H WITH MAXIMUM PCA DOSING) VIA A RIGHT ANTERIOR CHEST WALL PORT
     Route: 042
  7. HYDROMORPHONE [Suspect]
     Active Substance: HYDROMORPHONE
     Dosage: 75 MILLIGRAM/HOUR (BASE RATE WITHOUT ANY BENEFIT ON THE PATIENT^S PAIN
     Route: 042
  8. HYDROMORPHONE [Suspect]
     Active Substance: HYDROMORPHONE
     Dosage: UNK, (DECREASED BY 30 PERCENT IMMEDIATELY, AND A SUBSEQUENT 30 PERCENT EVERY 24 HOURS INTENDING TO D
     Route: 065
  9. ALPRAZOLAM [Concomitant]
     Active Substance: ALPRAZOLAM
     Indication: Anxiety
     Dosage: 4 MILLIGRAM (Q 4 HOURS AS NEEDED)
     Route: 065
  10. SERTRALINE [Concomitant]
     Active Substance: SERTRALINE HYDROCHLORIDE
     Indication: Depression
     Dosage: 150 MILLIGRAM, QD
     Route: 065
  11. DEXAMETHASONE [Concomitant]
     Active Substance: DEXAMETHASONE
     Indication: Pain
     Dosage: 8 MILLIGRAM, QD
     Route: 048
  12. DEXAMETHASONE [Concomitant]
     Active Substance: DEXAMETHASONE
     Dosage: 10 MILLIGRAM, QD
     Route: 048
  13. DEXAMETHASONE [Concomitant]
     Active Substance: DEXAMETHASONE
     Dosage: 12 MILLIGRAM, QD
     Route: 048
  14. CLONIDINE [Concomitant]
     Active Substance: CLONIDINE
     Indication: Pain
     Dosage: 0.2 MILLIGRAM, TID (TOPICAL SPRAY IN METERED 1 ML DOSES, TO THE WOUND SITES)
     Route: 061
  15. GABAPENTIN [Concomitant]
     Active Substance: GABAPENTIN
     Indication: Pain
     Dosage: 6 MILLIGRAM, TID,(TOPICAL SPRAY IN METERED 1 ML DOSES, TO THE WOUND SITES)
     Route: 061
  16. KETOPROFEN [Concomitant]
     Active Substance: KETOPROFEN
     Indication: Pain
     Dosage: 120 MILLIGRAM, TID(TOPICAL SPRAY IN METERED 1 ML DOSES, TO THE WOUND SITES)
     Route: 061
  17. TETRACAINE [Concomitant]
     Active Substance: TETRACAINE
     Indication: Pain
     Dosage: UNK, TID (7 MG PER 120 ML APPLIED THREE TIMES DAILY, IN METERED 1 ML DOSES, TO THE WOUND SITES)
     Route: 061
  18. KETAMINE [Concomitant]
     Active Substance: KETAMINE
     Indication: Pain
     Dosage: 10 MILLIGRAM, (PATIENT PORT FOLLOWED BY A CONTINUOUS IV INFUSION OF 10 MG/H (I.E., 0.1 MG/KG/ H) IV
     Route: 042

REACTIONS (6)
  - Neurotoxicity [Unknown]
  - Hallucination, visual [Unknown]
  - Allodynia [Unknown]
  - Hyperaesthesia [Unknown]
  - Delirium [Recovering/Resolving]
  - Myoclonus [Recovering/Resolving]
